FAERS Safety Report 4336249-6 (Version None)
Quarter: 2004Q2

REPORT INFORMATION
  Report Type: 
  Country: None (occurrence: None)
  Receive Date: 20040407
  Receipt Date: 20040318
  Transmission Date: 20050107
  Serious: Yes (Other)
  Sender: FDA-Public Use
  Company Number: GBS040314621

PATIENT
  Age: 36 Year
  Sex: Female

DRUGS (1)
  1. OLANZAPINE [Suspect]
     Indication: BIPOLAR I DISORDER
     Dosage: 5 MG
     Dates: start: 20040128, end: 20040216

REACTIONS (1)
  - ELECTROCARDIOGRAM QT PROLONGED [None]
